FAERS Safety Report 5241330-3 (Version None)
Quarter: 2007Q1

REPORT INFORMATION
  Report Type: 
  Country: None (occurrence: None)
  Receive Date: 20070212
  Receipt Date: 20070130
  Transmission Date: 20070707
  Serious: Yes (Hospitalization, Other)
  Sender: FDA-Public Use
  Company Number: 2007305299

PATIENT
  Sex: Female

DRUGS (14)
  1. BENADRYL [Suspect]
     Indication: HYPERSENSITIVITY
     Dosage: 50 MG AS NEEDED (50 MG), ORAL
     Route: 048
  2. BENADRYL [Suspect]
     Indication: HYPERSENSITIVITY
     Dosage: UNSPECIFIED AS NEEDED, ORAL
     Route: 048
  3. BENADRYL [Suspect]
     Indication: HYPERSENSITIVITY
     Dosage: INTRAMUSCULAR
     Route: 030
  4. BENADRYL [Suspect]
     Indication: HYPERSENSITIVITY
     Dosage: INTRAVENOUS
     Route: 042
  5. DIPHENHYDRAMINE HCL [Suspect]
     Indication: HYPERSENSITIVITY
     Dosage: UNSPECIFIED AS NEEDED, INTRAMUSCULAR
     Route: 030
  6. DIPHENHYDRAMINE INTRAVENOUS (DIPHENHYDRAMINE) [Suspect]
     Indication: HYPERSENSITIVITY
     Dosage: UNSPECIFIED AS NEEDED, INTRAVENOUS
     Route: 042
  7. ANTIINFLAMMATORY/ANTIRHEUMATIC PRODUCTS (ANTIINFLAMMATORY/ANTIRHEUMATI [Suspect]
     Indication: INFLAMMATION
  8. ANTIINFLAMMATORY/ANTIRHEUMATIC NON-STEROIDS (ANTIINFLAMMATORY/ANTIRHEU [Suspect]
     Indication: INFLAMMATION
  9. ANTIBIOTICS (ANTIBIOTICS) [Suspect]
     Indication: INFECTION
  10. DEXAMETHASONE TAB [Suspect]
     Indication: ANDROGEN REPLACEMENT THERAPY
  11. OTHER ANTIDIARRHOEALS (OTHER ANTIDIARRHOEALS) [Suspect]
  12. ANTIEMETICS AND ANTINAUSEANTS (ANTIEMETICS AND ANTINAUSEANTS) [Suspect]
  13. IODINE (IODINE) [Suspect]
  14. ZYVOX [Suspect]
     Indication: INFECTION

REACTIONS (30)
  - ABDOMINAL DISTENSION [None]
  - ABSCESS [None]
  - ADRENAL INSUFFICIENCY [None]
  - ANURIA [None]
  - BLOOD CORTISOL DECREASED [None]
  - BONE DISORDER [None]
  - BONE INFARCTION [None]
  - BONE PAIN [None]
  - BURNING SENSATION [None]
  - DRUG HYPERSENSITIVITY [None]
  - DRUG INEFFECTIVE [None]
  - FAECAL INCONTINENCE [None]
  - FALL [None]
  - FEELING JITTERY [None]
  - HEART RATE INCREASED [None]
  - HYPOTHYROIDISM [None]
  - INFECTION [None]
  - MALAISE [None]
  - OEDEMA [None]
  - PHARMACEUTICAL PRODUCT COMPLAINT [None]
  - PHARYNGEAL OEDEMA [None]
  - POOR QUALITY DRUG ADMINISTERED [None]
  - SEASONAL ALLERGY [None]
  - SINUS DISORDER [None]
  - SKIN DISCOLOURATION [None]
  - THROMBOSIS [None]
  - TREMOR [None]
  - UNEVALUABLE EVENT [None]
  - VOMITING [None]
  - WEIGHT INCREASED [None]
